FAERS Safety Report 9980134 (Version 1)
Quarter: 2014Q1

REPORT INFORMATION
  Report Type: Report from Study
  Country: US (occurrence: US)
  Receive Date: 20140307
  Receipt Date: 20140307
  Transmission Date: 20141002
  Serious: No
  Sender: FDA-Public Use
  Company Number: US-ABBVIE-13P-163-1175346-00

PATIENT
  Sex: Female

DRUGS (9)
  1. HUMIRA [Suspect]
     Indication: RHEUMATOID ARTHRITIS
     Dates: start: 20130912
  2. PREDNISONE [Concomitant]
     Indication: RHEUMATOID ARTHRITIS
  3. LEVOTHYROXINE [Concomitant]
     Indication: HYPOTHYROIDISM
  4. ZOLOFT [Concomitant]
     Indication: DEPRESSION
  5. LORTAB [Concomitant]
     Indication: PAIN
     Dosage: 7.5/500MG
  6. TRAMADOL [Concomitant]
     Indication: PAIN
  7. MULTIVITAMIN [Concomitant]
     Indication: SUPPLEMENTATION THERAPY
  8. VITAMIN B12 [Concomitant]
     Indication: SUPPLEMENTATION THERAPY
  9. VITAMIN C [Concomitant]
     Indication: SUPPLEMENTATION THERAPY

REACTIONS (4)
  - Respiratory tract congestion [Not Recovered/Not Resolved]
  - Lower respiratory tract infection [Not Recovered/Not Resolved]
  - Productive cough [Not Recovered/Not Resolved]
  - Increased upper airway secretion [Not Recovered/Not Resolved]
